FAERS Safety Report 10797554 (Version 5)
Quarter: 2015Q1

REPORT INFORMATION
  Report Type: Spontaneous
  Country: US (occurrence: US)
  Receive Date: 20150216
  Receipt Date: 20150324
  Transmission Date: 20150721
  Serious: Yes (Hospitalization)
  Sender: FDA-Public Use
  Company Number: US-UNITED THERAPEUTICS-UNT-2014-012835

PATIENT
  Age: 40 Year
  Sex: Female
  Weight: 97.51 kg

DRUGS (4)
  1. REMODULIN [Suspect]
     Active Substance: TREPROSTINIL
     Dosage: UNK
  2. REMODULIN [Suspect]
     Active Substance: TREPROSTINIL
     Dosage: UNK
  3. REVATIO [Concomitant]
     Active Substance: SILDENAFIL CITRATE
     Indication: PRODUCT USED FOR UNKNOWN INDICATION
  4. REMODULIN [Suspect]
     Active Substance: TREPROSTINIL
     Indication: PULMONARY HYPERTENSION
     Dosage: 0.072 ?G/KG, CONTINUING
     Route: 058
     Dates: start: 20110908

REACTIONS (8)
  - Infusion site pain [Unknown]
  - Abdominal pain [Unknown]
  - Infusion site irritation [Unknown]
  - Cellulitis [Unknown]
  - Infusion site infection [Unknown]
  - Accident at home [Unknown]
  - Infusion site cellulitis [Unknown]
  - Therapy cessation [Unknown]

NARRATIVE: CASE EVENT DATE: 201501
